FAERS Safety Report 19502254 (Version 2)
Quarter: 2021Q3

REPORT INFORMATION
  Report Type: Report from Study
  Country: BR (occurrence: BR)
  Receive Date: 20210707
  Receipt Date: 20210709
  Transmission Date: 20211014
  Serious: Yes (Other)
  Sender: FDA-Public Use
  Company Number: NVSC2021BR148902

PATIENT
  Sex: Female

DRUGS (2)
  1. DIOVAN [Suspect]
     Active Substance: VALSARTAN
     Indication: PRODUCT USED FOR UNKNOWN INDICATION
     Dosage: 1 DF, BID (ONE PILL IN THE MORNING AND ONE IN THE EVENING) (STARTED 10 YEARS AGO)
     Route: 065
     Dates: start: 2008
  2. DIOVAN [Suspect]
     Active Substance: VALSARTAN
     Dosage: 160 MG, BID (2 TABLETS TWICE A DAY)
     Route: 065
     Dates: start: 202101

REACTIONS (3)
  - Dementia Alzheimer^s type [Unknown]
  - Hypoacusis [Not Recovered/Not Resolved]
  - Aphasia [Unknown]
